FAERS Safety Report 13485638 (Version 1)
Quarter: 2017Q2

REPORT INFORMATION
  Report Type: Spontaneous
  Country: SA (occurrence: US)
  Receive Date: 20170425
  Receipt Date: 20170425
  Transmission Date: 20170830
  Serious: Yes (Disabling)
  Sender: FDA-Public Use
  Company Number: None

PATIENT
  Age: 6 Year
  Sex: Male

DRUGS (1)
  1. CYCLOSPORIN A [Suspect]
     Active Substance: CYCLOSPORINE

REACTIONS (1)
  - Seizure [None]

NARRATIVE: CASE EVENT DATE: 20160213
